FAERS Safety Report 8454104-7 (Version None)
Quarter: 2012Q2

REPORT INFORMATION
  Report Type: 
  Country: None (occurrence: None)
  Receive Date: 20120620
  Receipt Date: 20120613
  Transmission Date: 20120825
  Serious: Yes (Hospitalization)
  Sender: FDA-Public Use
  Company Number: US-TEVA-342874USA

PATIENT
  Age: 58 Year
  Sex: Female

DRUGS (3)
  1. PROVIGIL [Suspect]
     Route: 048
  2. ZIPRASIDONE HCL [Concomitant]
  3. OBETROL [Suspect]

REACTIONS (2)
  - ELECTROCARDIOGRAM QT PROLONGED [None]
  - HEART RATE DECREASED [None]
